FAERS Safety Report 15067130 (Version 1)
Quarter: 2018Q2

REPORT INFORMATION
  Report Type: Spontaneous
  Country: ES (occurrence: ES)
  Receive Date: 20180626
  Receipt Date: 20180626
  Transmission Date: 20180711
  Serious: Yes (Other)
  Sender: FDA-Public Use
  Company Number: ES-GLAXOSMITHKLINE-ES2018108438

PATIENT
  Age: 66 Year
  Sex: Female
  Weight: 60 kg

DRUGS (2)
  1. FLIXONASE [Suspect]
     Active Substance: FLUTICASONE PROPIONATE
     Indication: SEASONAL ALLERGY
     Dosage: UNK
     Route: 045
     Dates: start: 20180601, end: 20180605
  2. EBASTINE [Suspect]
     Active Substance: EBASTINE
     Indication: SEASONAL ALLERGY
     Dosage: 20 MG
     Route: 048
     Dates: start: 20180601, end: 20180605

REACTIONS (3)
  - Wheezing [Recovering/Resolving]
  - Respiratory distress [Recovered/Resolved]
  - Fatigue [Recovering/Resolving]

NARRATIVE: CASE EVENT DATE: 20180602
